FAERS Safety Report 5743237-1 (Version None)
Quarter: 2008Q2

REPORT INFORMATION
  Report Type: 
  Country: None (occurrence: None)
  Receive Date: 20080519
  Receipt Date: 20080514
  Transmission Date: 20081010
  Serious: Yes (Hospitalization)
  Sender: FDA-Public Use
  Company Number: DK-ABBOTT-08P-044-0440407-00

PATIENT
  Sex: Female
  Weight: 50 kg

DRUGS (2)
  1. HUMIRA [Suspect]
     Indication: CROHN'S DISEASE
     Route: 058
     Dates: start: 20070501
  2. AZATHIOPRINE [Interacting]
     Indication: DRUG USE FOR UNKNOWN INDICATION
     Dosage: FILM-COATED TABLET

REACTIONS (2)
  - ACUTE MYELOID LEUKAEMIA [None]
  - DRUG INTERACTION [None]
